FAERS Safety Report 18709760 (Version 1)
Quarter: 2021Q1

REPORT INFORMATION
  Report Type: Spontaneous
  Country: SE (occurrence: SE)
  Receive Date: 20210107
  Receipt Date: 20210107
  Transmission Date: 20210419
  Serious: Yes (Other)
  Sender: FDA-Public Use
  Company Number: SE-TEVA-2021-SE-1866100

PATIENT
  Age: 30 Year
  Sex: Female

DRUGS (9)
  1. DICLOFENAC [Concomitant]
     Active Substance: DICLOFENAC
  2. ZOMIG [Concomitant]
     Active Substance: ZOLMITRIPTAN
  3. IMIGRAN [Concomitant]
     Active Substance: SUMATRIPTAN SUCCINATE
  4. SAROTEN [Concomitant]
     Active Substance: AMITRIPTYLINE
  5. AJOVY [Suspect]
     Active Substance: FREMANEZUMAB-VFRM
     Indication: MIGRAINE
     Dosage: 225 MG 3 INJ. VAR 3:E MAN
     Route: 058
     Dates: start: 20201210
  6. MAXALT [Concomitant]
     Active Substance: RIZATRIPTAN BENZOATE
  7. MELATONIN [Concomitant]
     Active Substance: MELATONIN
  8. NAPROXEN. [Concomitant]
     Active Substance: NAPROXEN
  9. AJOVY [Suspect]
     Active Substance: FREMANEZUMAB-VFRM

REACTIONS (1)
  - Insomnia [Not Recovered/Not Resolved]

NARRATIVE: CASE EVENT DATE: 20201211
